FAERS Safety Report 5058309-7 (Version None)
Quarter: 2006Q2

REPORT INFORMATION
  Report Type: 
  Country: None (occurrence: None)
  Receive Date: 20060627
  Receipt Date: 20050627
  Transmission Date: 20061013
  Serious: Yes (Disabling)
  Sender: FDA-Public Use
  Company Number: 97657

PATIENT
  Age: 35 Year
  Sex: Male

DRUGS (1)
  1. ROFERON-A [Suspect]
     Indication: CHRONIC MYELOID LEUKAEMIA
     Dosage: 3 MILLIONIU DAILY SUBCUTANEOUS
     Route: 058
     Dates: start: 19950615

REACTIONS (8)
  - CHILLS [None]
  - COCCIDIOIDOMYCOSIS [None]
  - DEPRESSION [None]
  - FATIGUE [None]
  - FUNGAL INFECTION [None]
  - HEADACHE [None]
  - HYPERHIDROSIS [None]
  - PYREXIA [None]
